FAERS Safety Report 25362347 (Version 2)
Quarter: 2025Q2

REPORT INFORMATION
  Report Type: Spontaneous
  Country: JP (occurrence: JP)
  Receive Date: 20250527
  Receipt Date: 20250605
  Transmission Date: 20250716
  Serious: Yes (Hospitalization)
  Sender: STRIDES
  Company Number: None

PATIENT
  Age: 45 Year
  Sex: Female

DRUGS (4)
  1. PREDNISOLONE [Suspect]
     Active Substance: PREDNISOLONE
     Indication: Acute generalised exanthematous pustulosis
     Route: 048
  2. PREDNISOLONE [Suspect]
     Active Substance: PREDNISOLONE
     Indication: Drug eruption
     Route: 048
  3. SPESOLIMAB [Suspect]
     Active Substance: SPESOLIMAB
     Indication: Acute generalised exanthematous pustulosis
     Route: 065
  4. SPESOLIMAB [Suspect]
     Active Substance: SPESOLIMAB
     Indication: Drug eruption
     Route: 065

REACTIONS (2)
  - Neutrophilia [Recovered/Resolved]
  - Off label use [Unknown]
